FAERS Safety Report 6259827-6 (Version None)
Quarter: 2009Q3

REPORT INFORMATION
  Report Type: 
  Country: None (occurrence: None)
  Receive Date: 20090708
  Receipt Date: 20090701
  Transmission Date: 20100115
  Serious: Yes (Death, Hospitalization)
  Sender: FDA-Public Use
  Company Number: JP-BAYER-200812542BYL

PATIENT
  Age: 62 Year
  Sex: Male
  Weight: 63 kg

DRUGS (12)
  1. NEXAVAR [Suspect]
     Indication: RENAL CELL CARCINOMA STAGE IV
     Dosage: TOTAL DAILY DOSE: 800 MG  UNIT DOSE: 200 MG
     Route: 048
     Dates: start: 20080523, end: 20080826
  2. NEXAVAR [Suspect]
     Dosage: UNIT DOSE: 200 MG
     Route: 048
     Dates: start: 20080827, end: 20080903
  3. NEXAVAR [Suspect]
     Dosage: UNIT DOSE: 200 MG
     Route: 048
     Dates: start: 20080914, end: 20081107
  4. LOXONIN [Concomitant]
     Route: 048
     Dates: start: 20080508
  5. KLARICID [Concomitant]
     Dosage: TOTAL DAILY DOSE: 400 MG  UNIT DOSE: 200 MG
     Route: 048
     Dates: start: 20080714, end: 20080715
  6. MOBIC [Concomitant]
     Dosage: TOTAL DAILY DOSE: 10 MG  UNIT DOSE: 10 MG
     Route: 048
     Dates: start: 20080914
  7. TAGAMET [Concomitant]
     Dosage: UNIT DOSE: 200 MG
     Route: 048
     Dates: start: 20080914
  8. NOVORAPID MIX [Concomitant]
     Indication: DIABETES MELLITUS
     Dosage: 12-0-SCALE 200-299 4IU, 300-361 6IU, 400OVER 8IU
     Route: 058
     Dates: start: 20081205
  9. OXYCONTIN [Concomitant]
     Indication: PAIN MANAGEMENT
     Route: 048
     Dates: start: 20081112, end: 20081114
  10. NAPROXEN [Concomitant]
     Indication: TUMOUR ASSOCIATED FEVER
     Route: 048
     Dates: start: 20081205
  11. PRIMPERAN [Concomitant]
     Indication: NAUSEA
     Route: 048
     Dates: start: 20081109
  12. CONSTAN [Concomitant]
     Indication: MENTAL DISORDER
     Route: 048
     Dates: start: 20081205

REACTIONS (12)
  - ALOPECIA [None]
  - ARTHRALGIA [None]
  - CANCER PAIN [None]
  - CONSTIPATION [None]
  - DECREASED APPETITE [None]
  - FATIGUE [None]
  - HYPERGLYCAEMIA [None]
  - PALMAR-PLANTAR ERYTHRODYSAESTHESIA SYNDROME [None]
  - RASH [None]
  - RENAL CELL CARCINOMA STAGE IV [None]
  - SOMNOLENCE [None]
  - WEIGHT DECREASED [None]
